FAERS Safety Report 25553267 (Version 2)
Quarter: 2025Q3

REPORT INFORMATION
  Report Type: Spontaneous
  Country: JP (occurrence: JP)
  Receive Date: 20250715
  Receipt Date: 20250808
  Transmission Date: 20251021
  Serious: Yes (Life-Threatening, Hospitalization, Disabling, Other)
  Sender: ROCHE
  Company Number: JP-CHUGAI-2025014129

PATIENT
  Age: 78 Year
  Sex: Male

DRUGS (4)
  1. VABYSMO [Suspect]
     Active Substance: FARICIMAB-SVOA
     Indication: Neovascular age-related macular degeneration
     Route: 031
     Dates: start: 20230613, end: 20250318
  2. BRINZOLAMIDE\TIMOLOL MALEATE [Concomitant]
     Active Substance: BRINZOLAMIDE\TIMOLOL MALEATE
     Route: 047
  3. HYALURONATE SODIUM [Concomitant]
     Active Substance: HYALURONATE SODIUM
     Route: 047
  4. BROMFENAC SODIUM [Concomitant]
     Active Substance: BROMFENAC SODIUM
     Route: 047

REACTIONS (2)
  - Embolic stroke [Recovered/Resolved with Sequelae]
  - Atrial fibrillation [Unknown]

NARRATIVE: CASE EVENT DATE: 20250325
